FAERS Safety Report 17531435 (Version 1)
Quarter: 2020Q1

REPORT INFORMATION
  Report Type: Other
  Country: US (occurrence: US)
  Receive Date: 20200311
  Receipt Date: 20200311
  Transmission Date: 20200409
  Serious: Yes (Death, Life-Threatening, Hospitalization, Other)
  Sender: FDA-Public Use
  Company Number: US-C B FLEET CO INC-202003-US-001026

PATIENT
  Age: 42 Year
  Sex: Male

DRUGS (3)
  1. QUETIAPINE. [Suspect]
     Active Substance: QUETIAPINE
  2. ASPIRIN. [Suspect]
     Active Substance: ASPIRIN
     Indication: PRODUCT USED FOR UNKNOWN INDICATION
     Dosage: BABY ASPIRIN
     Route: 048
  3. DIPHENHYDRAMINE HCL [Suspect]
     Active Substance: DIPHENHYDRAMINE HYDROCHLORIDE
     Indication: PRODUCT USED FOR UNKNOWN INDICATION
     Dosage: DIPHENHYDRAMINE UNKNOWN DOSE

REACTIONS (4)
  - Toxicity to various agents [None]
  - Cardiac arrest [None]
  - Confusional state [Not Recovered/Not Resolved]
  - Tachypnoea [Not Recovered/Not Resolved]
